FAERS Safety Report 24949005 (Version 1)
Quarter: 2025Q1

REPORT INFORMATION
  Report Type: Spontaneous
  Country: CA (occurrence: CA)
  Receive Date: 20250210
  Receipt Date: 20250210
  Transmission Date: 20250409
  Serious: Yes (Death, Life-Threatening, Hospitalization, Disabling, Other)
  Sender: SANOFI AVENTIS
  Company Number: CA-SA-2025SA034783

PATIENT
  Age: 44 Year
  Sex: Female
  Weight: 97 kg

DRUGS (1)
  1. KEVZARA [Suspect]
     Active Substance: SARILUMAB
     Indication: Rheumatoid arthritis
     Route: 065

REACTIONS (89)
  - Autoimmune disorder [Fatal]
  - Breast cancer stage II [Fatal]
  - Adjustment disorder with depressed mood [Fatal]
  - Amnesia [Fatal]
  - Crohn^s disease [Fatal]
  - Disability [Fatal]
  - Deep vein thrombosis postoperative [Fatal]
  - Facet joint syndrome [Fatal]
  - Folliculitis [Fatal]
  - Gait disturbance [Fatal]
  - Hepatic cirrhosis [Fatal]
  - Hypercholesterolaemia [Fatal]
  - Irritable bowel syndrome [Fatal]
  - Lupus vulgaris [Fatal]
  - Lupus-like syndrome [Fatal]
  - Memory impairment [Fatal]
  - Migraine [Fatal]
  - Peripheral venous disease [Fatal]
  - Pneumonia [Fatal]
  - Pustular psoriasis [Fatal]
  - Road traffic accident [Fatal]
  - Thrombocytopenia [Fatal]
  - Pulmonary fibrosis [Fatal]
  - Sleep disorder due to general medical condition, insomnia type [Fatal]
  - Myositis [Fatal]
  - Lower limb fracture [Fatal]
  - Gastrointestinal disorder [Fatal]
  - Exostosis [Fatal]
  - Anti-cyclic citrullinated peptide antibody [Fatal]
  - Anxiety [Fatal]
  - Arthritis [Fatal]
  - Asthma [Fatal]
  - Back disorder [Fatal]
  - Bone erosion [Fatal]
  - Bursitis [Fatal]
  - C-reactive protein [Fatal]
  - Chest pain [Fatal]
  - Colitis ulcerative [Fatal]
  - Confusional state [Fatal]
  - Contusion [Fatal]
  - Dry mouth [Fatal]
  - Dyspepsia [Fatal]
  - Dyspnoea [Fatal]
  - Feeling hot [Fatal]
  - Fluid retention [Fatal]
  - Frequent bowel movements [Fatal]
  - Gait inability [Fatal]
  - Gastrointestinal disorder [Fatal]
  - General symptom [Fatal]
  - Grip strength decreased [Fatal]
  - Ill-defined disorder [Fatal]
  - Impaired healing [Fatal]
  - Infection [Fatal]
  - Inflammation [Fatal]
  - Insomnia [Fatal]
  - Joint stiffness [Fatal]
  - Laryngitis [Fatal]
  - Lip dry [Fatal]
  - Liver disorder [Fatal]
  - Lower respiratory tract infection [Fatal]
  - Lung disorder [Fatal]
  - Muscle injury [Fatal]
  - Muscle spasms [Fatal]
  - Muscular weakness [Fatal]
  - Musculoskeletal pain [Fatal]
  - Myositis [Fatal]
  - Nasopharyngitis [Fatal]
  - Night sweats [Fatal]
  - Pain in extremity [Fatal]
  - Paraesthesia [Fatal]
  - Peripheral swelling [Fatal]
  - Porphyria acute [Fatal]
  - Pruritus [Fatal]
  - Psoriasis [Fatal]
  - Pyrexia [Fatal]
  - Rash vesicular [Fatal]
  - Red blood cell sedimentation rate increased [Fatal]
  - Sleep disorder [Fatal]
  - Stomatitis [Fatal]
  - Subcutaneous drug absorption impaired [Fatal]
  - Urticaria [Fatal]
  - Weight decreased [Fatal]
  - Weight increased [Fatal]
  - Wound infection [Fatal]
  - X-ray abnormal [Fatal]
  - Underdose [Fatal]
  - Therapy non-responder [Fatal]
  - Prescribed underdose [Fatal]
  - Incorrect route of product administration [Fatal]
